FAERS Safety Report 17624977 (Version 1)
Quarter: 2020Q2

REPORT INFORMATION
  Report Type: Report from Study
  Country: None (occurrence: US)
  Receive Date: 20200404
  Receipt Date: 20200404
  Transmission Date: 20200713
  Serious: Yes (Other)
  Sender: FDA-Public Use
  Company Number: US-ABBVIE-20P-163-3343330-00

PATIENT
  Sex: Female

DRUGS (1)
  1. IMBRUVICA [Suspect]
     Active Substance: IBRUTINIB
     Indication: CHRONIC LYMPHOCYTIC LEUKAEMIA
     Route: 048
     Dates: start: 20200218

REACTIONS (10)
  - Stress [Unknown]
  - Lymphocyte count increased [Unknown]
  - Platelet count abnormal [Unknown]
  - Depressed mood [Unknown]
  - Insomnia [Unknown]
  - White blood cell count increased [Unknown]
  - Inappropriate affect [Unknown]
  - Multiple sclerosis [Unknown]
  - Cerebral disorder [Unknown]
  - Crying [Unknown]

NARRATIVE: CASE EVENT DATE: 2020
